FAERS Safety Report 7942557-X (Version None)
Quarter: 2011Q4

REPORT INFORMATION
  Report Type: 
  Country: None (occurrence: None)
  Receive Date: 20111128
  Receipt Date: 20111114
  Transmission Date: 20120403
  Serious: Yes (Other)
  Sender: FDA-Public Use
  Company Number: PH-GLAXOSMITHKLINE-B0764424A

PATIENT
  Age: 87 Year
  Sex: Male

DRUGS (1)
  1. PAZOPANIB [Suspect]
     Indication: METASTATIC RENAL CELL CARCINOMA
     Dosage: 800MG PER DAY
     Route: 065
     Dates: start: 20111103, end: 20111117

REACTIONS (11)
  - BLOOD PRESSURE INCREASED [None]
  - DECREASED APPETITE [None]
  - DIARRHOEA [None]
  - EATING DISORDER [None]
  - PRODUCT QUALITY ISSUE [None]
  - DEPRESSION [None]
  - FAECAL INCONTINENCE [None]
  - GINGIVAL INJURY [None]
  - NAUSEA [None]
  - HYPERTENSIVE CRISIS [None]
  - VISUAL IMPAIRMENT [None]
